FAERS Safety Report 4610447-6 (Version None)
Quarter: 2005Q1

REPORT INFORMATION
  Report Type: 
  Country: None (occurrence: None)
  Receive Date: 20050314
  Receipt Date: 20050302
  Transmission Date: 20050727
  Serious: Yes (Death)
  Sender: FDA-Public Use
  Company Number: 212228

PATIENT
  Age: 12 Year
  Sex: Male
  Weight: 18.1 kg

DRUGS (15)
  1. NUTROPIN AQ [Suspect]
     Indication: HYPOPITUITARISM
     Dosage: SEE IMAGE
     Dates: end: 20010112
  2. NUTROPIN AQ [Suspect]
     Indication: HYPOPITUITARISM
     Dosage: SEE IMAGE
     Dates: start: 20000601
  3. SYNTHROID [Concomitant]
  4. INSULIN [Concomitant]
  5. PROTONIX [Concomitant]
  6. EFFEXOR [Concomitant]
  7. FLOVENT [Concomitant]
  8. ALBUTEROL (ALBUTEROL, ALBUTEROL SULFATE) [Concomitant]
  9. PULMOZYME [Concomitant]
  10. VANCENASE [Concomitant]
  11. PROCARDIA XL [Concomitant]
  12. VASOTEC [Concomitant]
  13. LASIX [Concomitant]
  14. PREDNISONE [Concomitant]
  15. CORTEF [Concomitant]

REACTIONS (14)
  - ASEPTIC NECROSIS BONE [None]
  - BRONCHIECTASIS [None]
  - CLUBBING [None]
  - DIABETES MELLITUS INADEQUATE CONTROL [None]
  - DISEASE PROGRESSION [None]
  - DRUG RESISTANCE [None]
  - GAIT DISTURBANCE [None]
  - HYPOPROTEINAEMIA [None]
  - MALNUTRITION [None]
  - OBSTRUCTIVE AIRWAYS DISORDER [None]
  - RENAL FAILURE [None]
  - SINUSITIS [None]
  - TENDINOUS CONTRACTURE [None]
  - THERAPEUTIC RESPONSE DECREASED [None]
